FAERS Safety Report 19069684 (Version 1)
Quarter: 2021Q1

REPORT INFORMATION
  Report Type: Report from Study
  Country: US (occurrence: US)
  Receive Date: 20210329
  Receipt Date: 20210329
  Transmission Date: 20210420
  Serious: Yes (Other)
  Sender: FDA-Public Use
  Company Number: US-EMD SERONO-E2B_90048250

PATIENT
  Age: 53 Year
  Sex: Male

DRUGS (1)
  1. REBIF [Suspect]
     Active Substance: INTERFERON BETA-1A
     Indication: MULTIPLE SCLEROSIS
     Route: 058
     Dates: start: 20081210

REACTIONS (7)
  - Bladder catheterisation [Unknown]
  - Depressed mood [Not Recovered/Not Resolved]
  - Bladder operation [Unknown]
  - Urinary tract infection [Recovered/Resolved]
  - Injection site erythema [Recovering/Resolving]
  - Insomnia [Recovering/Resolving]
  - Fatigue [Not Recovered/Not Resolved]

NARRATIVE: CASE EVENT DATE: 2018
